FAERS Safety Report 9125641 (Version 1)
Quarter: 2013Q1

REPORT INFORMATION
  Report Type: Spontaneous
  Country: US (occurrence: US)
  Receive Date: 20130227
  Receipt Date: 20130227
  Transmission Date: 20140127
  Serious: No
  Sender: FDA-Public Use
  Company Number: US-PFIZER INC-2013071119

PATIENT
  Age: 59 Year
  Sex: Male
  Weight: 82.54 kg

DRUGS (3)
  1. LYRICA [Suspect]
     Indication: HERPES ZOSTER
     Dosage: 150 MG, 3X/DAY
     Dates: start: 2011
  2. LYRICA [Suspect]
     Indication: NERVE INJURY
  3. PREDNISONE [Suspect]
     Indication: SWELLING
     Dosage: 5 MG, 2X/DAY

REACTIONS (1)
  - Weight increased [Not Recovered/Not Resolved]
